FAERS Safety Report 6276334-5 (Version None)
Quarter: 2009Q3

REPORT INFORMATION
  Report Type: 
  Country: None (occurrence: None)
  Receive Date: 20090722
  Receipt Date: 20090710
  Transmission Date: 20100115
  Serious: Yes (Other)
  Sender: FDA-Public Use
  Company Number: US-JNJFOC-20090703990

PATIENT
  Age: 79 Year
  Sex: Male

DRUGS (2)
  1. NUCYNTA [Suspect]
     Indication: PAIN
     Route: 048
  2. SOMA [Concomitant]
     Route: 048

REACTIONS (1)
  - HALLUCINATION [None]
